FAERS Safety Report 5408416-1 (Version None)
Quarter: 2007Q3

REPORT INFORMATION
  Report Type: 
  Country: None (occurrence: None)
  Receive Date: 20070808
  Receipt Date: 20070803
  Transmission Date: 20080115
  Serious: Yes (Hospitalization)
  Sender: FDA-Public Use
  Company Number: JP-SP-2007-02525

PATIENT
  Age: 65 Year
  Sex: Female

DRUGS (7)
  1. IMMUCYST [Suspect]
     Indication: BLADDER CANCER
     Route: 043
     Dates: start: 20060328, end: 20060713
  2. IMMUCYST [Suspect]
     Route: 043
     Dates: start: 20060328, end: 20060713
  3. MEXILETINE HYDROCHLORIDE [Concomitant]
     Dates: start: 20060123, end: 20070522
  4. CARVEDILOL [Concomitant]
     Dates: start: 20060123, end: 20070522
  5. LANSOPRAZOLE [Concomitant]
     Dates: start: 20060123, end: 20070522
  6. REBAMIPIDE [Concomitant]
     Dates: start: 20060123, end: 20070522
  7. ETIZOLAM [Concomitant]
     Dates: start: 20060123, end: 20070522

REACTIONS (2)
  - PYELONEPHRITIS [None]
  - PYREXIA [None]
